FAERS Safety Report 8721886 (Version 46)
Quarter: 2018Q4

REPORT INFORMATION
  Report Type: Report from Study
  Country: CA (occurrence: CA)
  Receive Date: 20120814
  Receipt Date: 20181224
  Transmission Date: 20190205
  Serious: Yes (Hospitalization, Other)
  Sender: FDA-Public Use
  Company Number: PHHY2012CA060357

PATIENT
  Age: 81 Year
  Sex: Female

DRUGS (12)
  1. SANDOSTATIN LAR DEPOT [Suspect]
     Active Substance: OCTREOTIDE ACETATE
     Indication: GASTROINTESTINAL ANGIODYSPLASIA
     Dosage: 30 MG, QMO
     Route: 030
     Dates: start: 20120322, end: 20120419
  2. CARDIZEM [Concomitant]
     Active Substance: DILTIAZEM HYDROCHLORIDE
     Indication: PRODUCT USED FOR UNKNOWN INDICATION
     Route: 065
  3. ATACAND [Concomitant]
     Active Substance: CANDESARTAN CILEXETIL
     Indication: PRODUCT USED FOR UNKNOWN INDICATION
     Route: 065
  4. SANDOSTATIN [Suspect]
     Active Substance: OCTREOTIDE ACETATE
     Indication: GASTROINTESTINAL ANGIODYSPLASIA
     Dosage: BID
     Route: 058
     Dates: start: 201202
  5. IRON [Concomitant]
     Active Substance: IRON
     Indication: PRODUCT USED FOR UNKNOWN INDICATION
     Route: 042
     Dates: start: 20120807
  6. SANDOSTATIN LAR DEPOT [Suspect]
     Active Substance: OCTREOTIDE ACETATE
     Dosage: 20 MG, QMO
     Route: 030
     Dates: start: 20120517, end: 20120809
  7. COUMADINE [Concomitant]
     Active Substance: WARFARIN SODIUM
     Indication: PRODUCT USED FOR UNKNOWN INDICATION
     Route: 065
  8. SANDOSTATIN LAR DEPOT [Suspect]
     Active Substance: OCTREOTIDE ACETATE
     Dosage: 30 MG, QMO (EVERY 4 WEEKS)
     Route: 030
     Dates: start: 20120906
  9. FRAGMIN [Concomitant]
     Active Substance: DALTEPARIN SODIUM
     Indication: PRODUCT USED FOR UNKNOWN INDICATION
     Route: 065
     Dates: start: 20141214
  10. ATORVASTATIN [Suspect]
     Active Substance: ATORVASTATIN
     Indication: PRODUCT USED FOR UNKNOWN INDICATION
     Route: 065
  11. ONGLYZA [Concomitant]
     Active Substance: SAXAGLIPTIN HYDROCHLORIDE
     Indication: PRODUCT USED FOR UNKNOWN INDICATION
     Route: 065
  12. LASIX [Concomitant]
     Active Substance: FUROSEMIDE
     Indication: PRODUCT USED FOR UNKNOWN INDICATION
     Dosage: UNK UNK, QD
     Route: 065

REACTIONS (51)
  - Uterine cancer [Unknown]
  - Endometrial thickening [Recovered/Resolved]
  - Hepatic haematoma [Recovering/Resolving]
  - Upper limb fracture [Unknown]
  - Type 2 diabetes mellitus [Unknown]
  - Polydipsia [Unknown]
  - Breast cancer [Unknown]
  - Injection site pain [Recovered/Resolved]
  - Dyspnoea [Recovering/Resolving]
  - Infection [Unknown]
  - Post procedural bile leak [Unknown]
  - Blood pressure diastolic decreased [Unknown]
  - Second primary malignancy [Unknown]
  - Pollakiuria [Unknown]
  - Oxygen saturation decreased [Unknown]
  - Anaemia [Recovered/Resolved]
  - Fall [Unknown]
  - Blood glucose increased [Recovered/Resolved]
  - Vaginal haemorrhage [Recovered/Resolved]
  - Oedema [Unknown]
  - Blood pressure systolic increased [Unknown]
  - Cardiac failure [Recovering/Resolving]
  - Fatigue [Not Recovered/Not Resolved]
  - Gallbladder enlargement [Unknown]
  - Hyperhidrosis [Unknown]
  - Heart rate decreased [Recovering/Resolving]
  - Polyuria [Unknown]
  - Thirst [Unknown]
  - Musculoskeletal stiffness [Recovered/Resolved]
  - Dysphonia [Recovered/Resolved]
  - Epistaxis [Recovered/Resolved]
  - Product use in unapproved indication [Unknown]
  - Haemoglobin decreased [Unknown]
  - Pneumonia [Recovered/Resolved]
  - Pyrexia [Unknown]
  - Body temperature decreased [Unknown]
  - Headache [Unknown]
  - Body temperature increased [Recovering/Resolving]
  - Eating disorder [Unknown]
  - Epistaxis [Unknown]
  - Breast mass [Unknown]
  - Syringe issue [Unknown]
  - Abdominal pain [Unknown]
  - Productive cough [Unknown]
  - Escherichia infection [Recovering/Resolving]
  - Pleural effusion [Unknown]
  - Hip fracture [Unknown]
  - Faeces discoloured [Unknown]
  - Nasal congestion [Unknown]
  - Weight increased [Unknown]
  - Asthenia [Unknown]

NARRATIVE: CASE EVENT DATE: 20120322
